FAERS Safety Report 6215500-1 (Version None)
Quarter: 2009Q2

REPORT INFORMATION
  Report Type: 
  Country: None (occurrence: None)
  Receive Date: 20090603
  Receipt Date: 20090519
  Transmission Date: 20091009
  Serious: Yes (Hospitalization, Other)
  Sender: FDA-Public Use
  Company Number: 1-18370500

PATIENT
  Age: 69 Year
  Sex: Male

DRUGS (3)
  1. ALLOPURINOL TABLETS (STRENGTH AND MANUFACTURER UNKNOWN) [Suspect]
     Indication: HYPERURICAEMIA
     Dosage: 200 MG PER DAY, UNKNOWN
  2. AMLODIPINE [Concomitant]
  3. EPROSARTAN [Concomitant]

REACTIONS (15)
  - ALANINE AMINOTRANSFERASE INCREASED [None]
  - ASPARTATE AMINOTRANSFERASE INCREASED [None]
  - BLOOD ALKALINE PHOSPHATASE INCREASED [None]
  - BLOOD CREATINE INCREASED [None]
  - BLOOD UREA INCREASED [None]
  - CHOLESTASIS [None]
  - DRUG RASH WITH EOSINOPHILIA AND SYSTEMIC SYMPTOMS [None]
  - GAMMA-GLUTAMYLTRANSFERASE INCREASED [None]
  - GRANULOMATOUS LIVER DISEASE [None]
  - HAEMATURIA [None]
  - HEPATIC NECROSIS [None]
  - KIDNEY SMALL [None]
  - PCO2 DECREASED [None]
  - PROTEIN TOTAL INCREASED [None]
  - PROTEIN URINE PRESENT [None]
